FAERS Safety Report 8169214-1 (Version None)
Quarter: 2012Q1

REPORT INFORMATION
  Report Type: 
  Country: None (occurrence: None)
  Receive Date: 20120227
  Receipt Date: 20120217
  Transmission Date: 20120608
  Serious: Yes (Other)
  Sender: FDA-Public Use
  Company Number: US-ASTRAZENECA-2012SE11557

PATIENT
  Age: 58 Year
  Sex: Male
  Weight: 101.2 kg

DRUGS (5)
  1. PRILOSEC [Suspect]
     Route: 048
  2. NEXIUM [Suspect]
     Route: 048
  3. OMEPRAZOLE [Concomitant]
  4. CELEXA [Concomitant]
     Route: 048
  5. XANAX [Concomitant]

REACTIONS (4)
  - OESOPHAGEAL CARCINOMA [None]
  - ESSENTIAL HYPERTENSION [None]
  - ERECTILE DYSFUNCTION [None]
  - LYMPHADENOPATHY [None]
